FAERS Safety Report 5059413-X (Version None)
Quarter: 2006Q3

REPORT INFORMATION
  Report Type: 
  Country: None (occurrence: None)
  Receive Date: 20060724
  Receipt Date: 20050523
  Transmission Date: 20061208
  Serious: No
  Sender: FDA-Public Use
  Company Number: US-AMGEN-US135415

PATIENT
  Sex: Female
  Weight: 31.3 kg

DRUGS (11)
  1. EPOGEN [Suspect]
     Indication: RENAL FAILURE CHRONIC
     Route: 014
     Dates: start: 20030620
  2. MEDICINALPRODUCT NOT SPECIFIED BY SENDER [Concomitant]
     Dates: start: 20030601
  3. MEDICINALPRODUCT NOT SPECIFIED BY SENDER [Concomitant]
     Dates: start: 20030601
  4. MEDICINALPRODUCT NOT SPECIFIED BY SENDER [Concomitant]
     Dates: start: 20041101
  5. MEDICINALPRODUCT NOT SPECIFIED BY SENDER [Concomitant]
     Dates: start: 20030701
  6. MEDICINALPRODUCT NOT SPECIFIED BY SENDER [Concomitant]
     Dates: start: 20040401
  7. MEDICINALPRODUCT NOT SPECIFIED BY SENDER [Concomitant]
     Dates: start: 20030601
  8. MEDICINALPRODUCT NOT SPECIFIED BY SENDER [Concomitant]
     Dates: start: 20040301
  9. MEDICINALPRODUCT NOT SPECIFIED BY SENDER [Concomitant]
     Dates: start: 20050501
  10. MEDICINALPRODUCT NOT SPECIFIED BY SENDER [Concomitant]
     Dates: start: 20040601
  11. MEDICINALPRODUCT NOT SPECIFIED BY SENDER [Concomitant]
     Dates: start: 20040901

REACTIONS (1)
  - THERAPEUTIC RESPONSE DECREASED [None]
